FAERS Safety Report 6574719-0 (Version None)
Quarter: 2010Q1

REPORT INFORMATION
  Report Type: 
  Country: None (occurrence: None)
  Receive Date: 20100209
  Receipt Date: 20100129
  Transmission Date: 20100710
  Serious: Yes (Hospitalization)
  Sender: FDA-Public Use
  Company Number: PHHO2009US15544

PATIENT
  Sex: Male

DRUGS (9)
  1. AFINITOR [Suspect]
     Indication: NEOPLASM
     Dosage: 5 MG
     Route: 048
     Dates: start: 20091007
  2. AVASTIN [Suspect]
     Indication: NEOPLASM
     Dosage: UNK
     Route: 042
     Dates: start: 20091007
  3. CAPECITABINE COMP-CAP+TAB [Suspect]
     Indication: NEOPLASM
     Dosage: UNK
     Route: 048
     Dates: start: 20091007
  4. OXALIPLATIN COMP-OXA+ [Suspect]
     Indication: NEOPLASM
     Dosage: 308MG
     Route: 042
     Dates: start: 20091007
  5. LOMOTIL [Concomitant]
  6. NAPROXEN [Concomitant]
  7. PROTONIX [Concomitant]
  8. ALLOPURINOL [Concomitant]
  9. PERCOCET [Concomitant]

REACTIONS (4)
  - ABDOMINAL PAIN UPPER [None]
  - CHOLECYSTECTOMY [None]
  - CHOLECYSTITIS CHRONIC [None]
  - CHOLELITHIASIS [None]
